FAERS Safety Report 5142800-9 (Version None)
Quarter: 2006Q4

REPORT INFORMATION
  Report Type: 
  Country: None (occurrence: None)
  Receive Date: 20061102
  Receipt Date: 20061026
  Transmission Date: 20070319
  Serious: Yes (Death, Disabling)
  Sender: FDA-Public Use
  Company Number: MX-MERCK-0610MEX00043

PATIENT
  Age: 50 Year
  Sex: Female
  Weight: 60 kg

DRUGS (4)
  1. JANUVIA [Suspect]
     Indication: DIABETES MELLITUS
     Route: 048
     Dates: start: 20060901, end: 20061001
  2. INSULIN LISPRO [Concomitant]
     Indication: DIABETES MELLITUS
     Route: 058
     Dates: start: 20040101, end: 20061001
  3. INSULIN LISPRO [Concomitant]
     Route: 058
     Dates: start: 20040101, end: 20061001
  4. BROMAZEPAM [Concomitant]
     Indication: STRESS
     Route: 048
     Dates: end: 20061001

REACTIONS (1)
  - DEATH [None]
